FAERS Safety Report 8645661 (Version 2)
Quarter: 2012Q4

REPORT INFORMATION
  Report Type: 
  Country: US (occurrence: US)
  Receive Date: 20120702
  Receipt Date: 20120920
  Transmission Date: 20130627
  Serious: Yes (Other)
  Sender: FDA-Public Use
  Company Number: PHEH2012US012887

PATIENT
  Age: 37 Year
  Sex: Female
  Weight: 72.56 kg

DRUGS (5)
  1. GILENYA [Suspect]
     Dosage: 0.5 mg, QD
     Route: 048
     Dates: start: 20120530
  2. CYMBALTA [Concomitant]
     Dosage: 20 mg, UNK
     Route: 048
  3. ATIVAN [Concomitant]
     Dosage: 1 mg, UNK
     Route: 048
  4. TOPAMAX [Concomitant]
     Dosage: 50 mg, UNK
     Route: 048
  5. BACLOFEN [Concomitant]
     Dosage: 20 mg, UNK
     Route: 048

REACTIONS (1)
  - Bundle branch block [Recovered/Resolved]
